FAERS Safety Report 6310029-4 (Version None)
Quarter: 2009Q3

REPORT INFORMATION
  Report Type: 
  Country: None (occurrence: None)
  Receive Date: 20090814
  Receipt Date: 20090803
  Transmission Date: 20100115
  Serious: Yes (Hospitalization)
  Sender: FDA-Public Use
  Company Number: IT-KINGPHARMUSA00001-K200700667

PATIENT
  Sex: Male

DRUGS (5)
  1. SYNERCID [Suspect]
     Indication: ENTEROCOCCAL INFECTION
     Dosage: 7 MG/KG, TID
     Route: 042
     Dates: start: 20070519, end: 20070527
  2. CYCLOVIRAN /00587301/ [Concomitant]
     Dosage: 1200 MG, UNK
     Route: 048
     Dates: start: 20070409, end: 20070529
  3. CYCLOSPORINE [Concomitant]
     Dosage: UNK
     Route: 048
     Dates: start: 20070404, end: 20070529
  4. FLUCONAZOLE [Concomitant]
     Dosage: 200 MG, UNK
     Route: 048
     Dates: start: 20070331, end: 20070529
  5. CYMEVENE [Concomitant]
     Dosage: 700 MG, UNK
     Route: 042
     Dates: start: 20070517, end: 20070529

REACTIONS (5)
  - ASTHENIA [None]
  - BONE PAIN [None]
  - MUSCULAR WEAKNESS [None]
  - MUSCULOSKELETAL DISORDER [None]
  - PAIN IN EXTREMITY [None]
